FAERS Safety Report 23649270 (Version 1)
Quarter: 2024Q1

REPORT INFORMATION
  Report Type: Spontaneous
  Country: US (occurrence: US)
  Receive Date: 20240319
  Receipt Date: 20240319
  Transmission Date: 20240409
  Serious: No
  Sender: FDA-Public Use
  Company Number: US-Calliditas-2024CAL00436

PATIENT
  Age: 45 Year
  Sex: Male
  Weight: 75.7 kg

DRUGS (1)
  1. TARPEYO [Suspect]
     Active Substance: BUDESONIDE
     Indication: Haematuria
     Dosage: 16 MG (4 MG CAPSULES) ONCE DAILY
     Route: 048
     Dates: start: 20231227

REACTIONS (4)
  - Muscle spasms [Unknown]
  - Weight increased [Unknown]
  - Waist circumference increased [Unknown]
  - Off label use [Unknown]
